FAERS Safety Report 26120638 (Version 1)
Quarter: 2025Q4

REPORT INFORMATION
  Report Type: Spontaneous
  Country: JP (occurrence: JP)
  Receive Date: 20251204
  Receipt Date: 20251204
  Transmission Date: 20260117
  Serious: Yes (Death, Other)
  Sender: GILEAD
  Company Number: JP-GILEAD-2025-0739240

PATIENT
  Age: 77 Year
  Sex: Female

DRUGS (4)
  1. VEKLURY [Suspect]
     Active Substance: REMDESIVIR
     Indication: COVID-19
     Dosage: UNK
     Route: 065
  2. DEXAMETHASONE [Concomitant]
     Active Substance: DEXAMETHASONE
     Indication: Respiratory failure
  3. BARICITINIB [Concomitant]
     Active Substance: BARICITINIB
     Indication: Respiratory failure
     Dosage: UNK
  4. TOCILIZUMAB [Concomitant]
     Active Substance: TOCILIZUMAB
     Indication: Immunosuppression

REACTIONS (6)
  - Death [Fatal]
  - Polymyositis [Unknown]
  - Dermatomyositis [Unknown]
  - Interstitial lung disease [Unknown]
  - Bronchopulmonary aspergillosis [Unknown]
  - Pneumothorax [Unknown]
